FAERS Safety Report 18303297 (Version 1)
Quarter: 2020Q3

REPORT INFORMATION
  Report Type: Spontaneous
  Country: CA (occurrence: CA)
  Receive Date: 20200923
  Receipt Date: 20200923
  Transmission Date: 20201103
  Serious: Yes (Other)
  Sender: FDA-Public Use
  Company Number: CA-TEVA-2020-CA-1830321

PATIENT
  Sex: Male

DRUGS (40)
  1. CICLOSPORIN [Interacting]
     Active Substance: CYCLOSPORINE
     Indication: IMMUNOSUPPRESSANT DRUG THERAPY
     Dosage: 50 MILLIGRAM DAILY;
     Route: 065
  2. CICLOSPORIN [Interacting]
     Active Substance: CYCLOSPORINE
     Dosage: 20 MILLIGRAM DAILY;
     Route: 065
  3. LAMIVUDINE. [Interacting]
     Active Substance: LAMIVUDINE
     Route: 065
  4. LAMIVUDINE. [Interacting]
     Active Substance: LAMIVUDINE
     Route: 065
  5. RALTEGRAVIR. [Interacting]
     Active Substance: RALTEGRAVIR
     Indication: HIV INFECTION
     Dosage: 800 MILLIGRAM DAILY;
     Route: 065
  6. TACROLIMUS. [Interacting]
     Active Substance: TACROLIMUS
     Dosage: .25 MILLIGRAM DAILY;
     Route: 065
  7. ABACAVIR. [Interacting]
     Active Substance: ABACAVIR
     Route: 065
  8. ETRAVIRINE [Interacting]
     Active Substance: ETRAVIRINE
     Indication: HIV INFECTION
     Dosage: 400 MILLIGRAM DAILY;
     Route: 065
  9. TACROLIMUS. [Interacting]
     Active Substance: TACROLIMUS
     Dosage: 1 MILLIGRAM DAILY;
     Route: 065
  10. TACROLIMUS. [Interacting]
     Active Substance: TACROLIMUS
     Route: 065
  11. CICLOSPORIN [Interacting]
     Active Substance: CYCLOSPORINE
     Route: 065
  12. CICLOSPORIN [Interacting]
     Active Substance: CYCLOSPORINE
     Route: 065
  13. RITONAVIR. [Interacting]
     Active Substance: RITONAVIR
     Dosage: 200 MILLIGRAM DAILY;
     Route: 065
  14. TACROLIMUS. [Interacting]
     Active Substance: TACROLIMUS
     Indication: IMMUNOSUPPRESSANT DRUG THERAPY
     Route: 065
  15. TRUVADA [Interacting]
     Active Substance: EMTRICITABINE\TENOFOVIR DISOPROXIL FUMARATE
     Indication: HIV INFECTION
     Route: 065
  16. MYCOPHENOLATE MOFETIL. [Suspect]
     Active Substance: MYCOPHENOLATE MOFETIL
     Indication: IMMUNOSUPPRESSANT DRUG THERAPY
     Route: 065
  17. ABACAVIR. [Interacting]
     Active Substance: ABACAVIR
     Route: 065
  18. DARUNAVIR [Interacting]
     Active Substance: DARUNAVIR
     Dosage: 1200 MILLIGRAM DAILY;
     Route: 065
  19. LAMIVUDINE. [Interacting]
     Active Substance: LAMIVUDINE
     Route: 048
  20. ABACAVIR. [Interacting]
     Active Substance: ABACAVIR
     Indication: HIV INFECTION
     Route: 065
  21. ABACAVIR. [Interacting]
     Active Substance: ABACAVIR
     Route: 065
  22. DARUNAVIR [Interacting]
     Active Substance: DARUNAVIR
     Indication: HIV INFECTION
     Dosage: 1200 MILLIGRAM DAILY;
     Route: 065
  23. DARUNAVIR [Interacting]
     Active Substance: DARUNAVIR
     Dosage: 1200 MILLIGRAM DAILY;
     Route: 065
  24. STAVUDINE. [Interacting]
     Active Substance: STAVUDINE
     Indication: HIV INFECTION
     Route: 048
  25. TRIZIVIR [Interacting]
     Active Substance: ABACAVIR SULFATE\LAMIVUDINE\ZIDOVUDINE
     Indication: HIV INFECTION
     Dosage: 2 DOSAGE FORMS DAILY;
     Route: 065
  26. ZIDOVUDINE. [Interacting]
     Active Substance: ZIDOVUDINE
     Indication: HIV INFECTION
     Route: 065
  27. CICLOSPORIN [Interacting]
     Active Substance: CYCLOSPORINE
     Route: 065
  28. PREDNISONE. [Interacting]
     Active Substance: PREDNISONE
     Indication: IMMUNOSUPPRESSANT DRUG THERAPY
     Route: 065
  29. FOSAMPRENAVIR [Interacting]
     Active Substance: FOSAMPRENAVIR
     Indication: HIV INFECTION
     Dosage: 1400 MILLIGRAM DAILY;
     Route: 065
  30. LAMIVUDINE. [Interacting]
     Active Substance: LAMIVUDINE
     Indication: HIV INFECTION
     Route: 065
  31. CICLOSPORIN [Interacting]
     Active Substance: CYCLOSPORINE
     Route: 065
  32. CICLOSPORIN [Interacting]
     Active Substance: CYCLOSPORINE
     Route: 065
  33. ATAZANAVIR. [Interacting]
     Active Substance: ATAZANAVIR
     Indication: HIV INFECTION
     Route: 048
  34. COBICISTAT/ELVITEGRAVIR/EMTRICITABINE/TENOFOVIR ALAFENAMIDE FUMARATE [Interacting]
     Active Substance: COBICISTAT\ELVITEGRAVIR\EMTRICITABINE\TENOFOVIR ALAFENAMIDE FUMARATE
     Indication: HIV INFECTION
     Route: 065
  35. RITONAVIR. [Interacting]
     Active Substance: RITONAVIR
     Dosage: 200 MILLIGRAM DAILY;
     Route: 065
  36. RITONAVIR. [Interacting]
     Active Substance: RITONAVIR
     Dosage: 200 MILLIGRAM DAILY;
     Route: 065
  37. TACROLIMUS. [Interacting]
     Active Substance: TACROLIMUS
     Route: 065
  38. RITONAVIR. [Interacting]
     Active Substance: RITONAVIR
     Indication: HIV INFECTION
     Route: 065
  39. RITONAVIR. [Interacting]
     Active Substance: RITONAVIR
     Dosage: 200 MILLIGRAM DAILY;
     Route: 065
  40. TACROLIMUS. [Interacting]
     Active Substance: TACROLIMUS
     Route: 065

REACTIONS (3)
  - Heart transplant rejection [Unknown]
  - Drug level increased [Unknown]
  - Drug interaction [Unknown]
